FAERS Safety Report 5086030-8 (Version None)
Quarter: 2006Q3

REPORT INFORMATION
  Report Type: 
  Country: None (occurrence: None)
  Receive Date: 20060817
  Receipt Date: 20060808
  Transmission Date: 20061208
  Serious: Yes (Hospitalization)
  Sender: FDA-Public Use
  Company Number: 2006-01716

PATIENT
  Age: 70 Year
  Sex: Male

DRUGS (11)
  1. VELCADE [Suspect]
     Indication: MULTIPLE MYELOMA
  2. CALTRATE (CALCIUM CARBONATE) TABLET [Concomitant]
  3. SODIUM BICARBONATE IN PLASTIC CONTAINER [Concomitant]
  4. DIAMICRON (GLICLAZIDE) [Concomitant]
  5. AUGMENTIN DUO FORTE (CLAVULANATE POTASSIUM, AMOXICILLIN TRIHYDRATE) TA [Concomitant]
  6. FUROSEMIDE [Concomitant]
  7. WARFARIN SODIUM [Concomitant]
  8. ISOPTIN [Concomitant]
  9. TEARS PLUS (POLYVINYL ALCOHOL, POLYVIDONE) [Concomitant]
  10. SLOW-K [Concomitant]
  11. MOVICOL (SODIUM BICARBONATE, SODIUM CHLORIDE, MACROGOL, POTASSIUM CHLO [Concomitant]

REACTIONS (4)
  - ATRIAL FIBRILLATION [None]
  - BRADYCARDIA [None]
  - SICK SINUS SYNDROME [None]
  - VIRAL INFECTION [None]
